FAERS Safety Report 15573932 (Version 1)
Quarter: 2018Q4

REPORT INFORMATION
  Report Type: Spontaneous
  Country: US (occurrence: US)
  Receive Date: 20181101
  Receipt Date: 20181101
  Transmission Date: 20190205
  Serious: No
  Sender: FDA-Public Use
  Company Number: US-TEVA-2018-US-968250

PATIENT
  Age: 65 Year
  Sex: Female

DRUGS (1)
  1. CLONAZEPAM TEVA [Suspect]
     Active Substance: CLONAZEPAM
     Indication: PANIC DISORDER
     Route: 065
     Dates: start: 2012

REACTIONS (4)
  - Agoraphobia [Unknown]
  - Panic attack [Recovered/Resolved]
  - Paranoia [Unknown]
  - Anxiety [Recovered/Resolved]
